FAERS Safety Report 9154871 (Version 2)
Quarter: 2013Q2

REPORT INFORMATION
  Report Type: Spontaneous
  Country: AU (occurrence: AU)
  Receive Date: 20130311
  Receipt Date: 20130401
  Transmission Date: 20140414
  Serious: Yes (Other)
  Sender: FDA-Public Use
  Company Number: PHHY2013AU022922

PATIENT
  Age: 51 Year
  Sex: Male

DRUGS (6)
  1. GILENYA [Suspect]
     Indication: MULTIPLE SCLEROSIS
     Dosage: 0.5 MG, UNK
     Route: 048
     Dates: start: 20111012, end: 201202
  2. PREDNISONE [Concomitant]
     Dosage: 10 MG, DAILY
     Route: 048
     Dates: start: 2008
  3. RISEDRONATE SODIUM [Concomitant]
     Indication: OSTEOPOROSIS
     Dosage: 150 MG, QMO
     Route: 048
  4. VENTOLIN                           /00942701/ [Concomitant]
     Indication: ASTHMA
     Dosage: UNK
  5. SERETIDE [Concomitant]
     Indication: ASTHMA
     Dosage: UNK
  6. SINGULAIR [Concomitant]
     Indication: ASTHMA
     Dosage: 10 MG,DAILY
     Route: 048

REACTIONS (6)
  - Multiple sclerosis relapse [Unknown]
  - Ear pain [Unknown]
  - Diplopia [Recovered/Resolved]
  - Central nervous system lesion [Recovered/Resolved]
  - Balance disorder [Recovered/Resolved]
  - Ataxia [Unknown]
